FAERS Safety Report 15494626 (Version 4)
Quarter: 2019Q2

REPORT INFORMATION
  Report Type: Report from Study
  Country: DE (occurrence: DE)
  Receive Date: 20181012
  Receipt Date: 20190611
  Transmission Date: 20190711
  Serious: Yes (Hospitalization, Other)
  Sender: FDA-Public Use
  Company Number: PHHY2018DE117331

PATIENT
  Age: 47 Year
  Sex: Female

DRUGS (1)
  1. GILENYA [Suspect]
     Active Substance: FINGOLIMOD HYDROCHLORIDE
     Indication: MULTIPLE SCLEROSIS
     Dosage: QD
     Route: 048
     Dates: start: 20140722

REACTIONS (7)
  - Iron deficiency anaemia [Unknown]
  - Rib fracture [Unknown]
  - Incontinence [Unknown]
  - Trigeminal neuralgia [Recovered/Resolved]
  - Gamma-glutamyltransferase increased [Unknown]
  - Lymphocyte count decreased [Unknown]
  - Vertigo [Recovered/Resolved]

NARRATIVE: CASE EVENT DATE: 20161205
